FAERS Safety Report 8172631-7 (Version None)
Quarter: 2012Q1

REPORT INFORMATION
  Report Type: 
  Country: None (occurrence: None)
  Receive Date: 20120229
  Receipt Date: 20120224
  Transmission Date: 20120608
  Serious: No
  Sender: FDA-Public Use
  Company Number: US-PFIZER INC-2010092214

PATIENT
  Sex: Female
  Weight: 64.399 kg

DRUGS (14)
  1. DILTIAZEM HCL [Suspect]
     Indication: CARDIAC DISORDER
     Dosage: 120 MG, 2X/DAY
  2. VITAMIN B COMPLEX CAP [Concomitant]
     Dosage: UNK
  3. ACETYLSALICYLIC ACID [Concomitant]
     Indication: CARDIAC DISORDER
     Dosage: 81 MG, 1X/DAY
  4. TIKOSYN [Suspect]
     Dosage: 250 UG, 2X/DAY
     Dates: start: 20101110
  5. LUNESTA [Concomitant]
     Indication: SLEEP DISORDER
     Dosage: 3 MG, 1X/DAY
     Route: 048
     Dates: start: 19900101
  6. COUMADIN [Suspect]
     Indication: ANTICOAGULANT THERAPY
     Dosage: 1X/DAY
     Route: 048
     Dates: start: 20090201
  7. PREMARIN [Concomitant]
     Indication: BLADDER CANCER
     Dosage: 0.3 MG, UNK
     Route: 048
     Dates: start: 19870101
  8. CHONDROITIN/GLUCOSAMINE [Concomitant]
     Indication: ARTHRITIS
     Dosage: UNK
  9. CHONDROITIN/GLUCOSAMINE [Concomitant]
     Indication: BONE DISORDER
  10. TIKOSYN [Suspect]
     Indication: ATRIAL FIBRILLATION
     Dosage: 250 UG, 2X/DAY
     Route: 048
     Dates: start: 20100301
  11. MULTI-VITAMINS [Concomitant]
     Dosage: UNK
  12. ZOLOFT [Concomitant]
     Indication: DEPRESSION
     Dosage: 25 MG, UNK
     Route: 048
     Dates: start: 20100301
  13. ASCORBIC ACID [Concomitant]
     Dosage: UNK
  14. COUMADIN [Suspect]
     Indication: BLOOD DISORDER
     Dosage: 5 MG, DAILY
     Dates: start: 20100101

REACTIONS (3)
  - ANXIETY [None]
  - DRUG DOSE OMISSION [None]
  - HEADACHE [None]
